FAERS Safety Report 6862612-5 (Version None)
Quarter: 2010Q3

REPORT INFORMATION
  Report Type: 
  Country: None (occurrence: None)
  Receive Date: 20100719
  Receipt Date: 20100622
  Transmission Date: 20110219
  Serious: Yes (Other)
  Sender: FDA-Public Use
  Company Number: 7008703

PATIENT
  Age: 76 Year
  Sex: Female

DRUGS (4)
  1. L-THYROXIN (LEVOTHYROXINE) (100) (LEVOTHYROXINE, LEVOTHYROXINE SODIUM) [Suspect]
     Indication: PRODUCT USED FOR UNKNOWN INDICATION
  2. SIMVASTATIN [Concomitant]
  3. PANTOPRAZOLE SODIUM [Concomitant]
  4. HCT (HYDROCHLOROTHIAZIDE) (HYDROCHLOROTHIAZIDE) [Concomitant]

REACTIONS (1)
  - WOUND TREATMENT [None]
